FAERS Safety Report 25264102 (Version 1)
Quarter: 2025Q2

REPORT INFORMATION
  Report Type: Spontaneous
  Country: US (occurrence: None)
  Receive Date: 20250501
  Receipt Date: 20250501
  Transmission Date: 20250716
  Serious: No
  Sender: FDA-CTU
  Company Number: None

PATIENT
  Age: 44 Year
  Sex: Female
  Weight: 72 kg

DRUGS (8)
  1. PIMPLES PATCH [Suspect]
     Active Substance: HAMAMELIS VIRGINIANA TOP WATER
     Indication: Acne
     Route: 061
     Dates: start: 20250427, end: 20250427
  2. Levothroxin [Concomitant]
  3. LABETALOL HYDROCHLORIDE [Concomitant]
     Active Substance: LABETALOL HYDROCHLORIDE
  4. LITHIUM [Concomitant]
     Active Substance: LITHIUM
  5. seroquel 50 mgs [Concomitant]
  6. seroquel 100 mgs [Concomitant]
  7. kolonopin [Concomitant]
  8. XANAX [Concomitant]
     Active Substance: ALPRAZOLAM

REACTIONS (2)
  - Erythema [None]
  - Scab [None]

NARRATIVE: CASE EVENT DATE: 20250427
